FAERS Safety Report 8310634-X (Version None)
Quarter: 2012Q2

REPORT INFORMATION
  Report Type: 
  Country: None (occurrence: None)
  Receive Date: 20120425
  Receipt Date: 20120425
  Transmission Date: 20120825
  Serious: Yes (Death)
  Sender: FDA-Public Use
  Company Number: None

PATIENT
  Age: 57 Year
  Sex: Male
  Weight: 96.161 kg

DRUGS (1)
  1. BENAZEPRIL HYDROCHLORIDE [Suspect]
     Indication: HYPERTENSION
     Dosage: 20.0 MG
     Route: 048
     Dates: start: 20120326, end: 20120326

REACTIONS (3)
  - SENSATION OF FOREIGN BODY [None]
  - PAIN [None]
  - ANGIOEDEMA [None]
